FAERS Safety Report 8760679 (Version 4)
Quarter: 2013Q2

REPORT INFORMATION
  Report Type: Report from Study
  Country: JP (occurrence: JP)
  Receive Date: 20120830
  Receipt Date: 20130411
  Transmission Date: 20140414
  Serious: Yes (Hospitalization)
  Sender: FDA-Public Use
  Company Number: JP-009507513-1208JPN010806

PATIENT
  Age: 53 Year
  Sex: Female
  Weight: 60 kg

DRUGS (13)
  1. PEGINTRON [Suspect]
     Indication: CHRONIC HEPATITIS C
     Dosage: 1.5 MICROGRAM PER KILOGRAM, QW
     Route: 058
     Dates: start: 20120621, end: 20120803
  2. REBETOL [Suspect]
     Indication: CHRONIC HEPATITIS C
     Dosage: 200 MG, QD
     Route: 048
     Dates: start: 20120713, end: 20120806
  3. REBETOL [Suspect]
     Dosage: 600 MG, QD
     Route: 048
     Dates: start: 20120621, end: 20120704
  4. REBETOL [Suspect]
     Dosage: 400 MG, QD
     Route: 048
     Dates: start: 20120705, end: 20120712
  5. TELAVIC [Suspect]
     Indication: CHRONIC HEPATITIS C
     Dosage: 2250 MG, QD
     Route: 048
     Dates: start: 20120628, end: 20120806
  6. TELAVIC [Suspect]
     Indication: VIRAEMIA
     Dosage: 1500 MG, QD
     Route: 048
     Dates: start: 20120621, end: 20120627
  7. FEBURIC [Concomitant]
     Indication: PROPHYLAXIS
     Dosage: 20 MG, QD
     Route: 048
     Dates: start: 20120727, end: 20120806
  8. FEBURIC [Concomitant]
     Dosage: 10 MG, QD
     Route: 048
     Dates: start: 20120621, end: 20120726
  9. LOXONIN [Concomitant]
     Indication: PROPHYLAXIS
     Dosage: 60 MG/DAY, PRN (DAILY DOSE UNKNOWN)
     Route: 048
     Dates: start: 20120621, end: 20120806
  10. MUCOSTA [Concomitant]
     Indication: PROPHYLAXIS
     Dosage: 100 MG/DAY, PRN (DAILY DOSE UNKNOWN)
     Route: 048
     Dates: start: 20120621, end: 20120806
  11. LOCOID [Concomitant]
     Indication: RASH
     Dosage: PRN (DAILY DOSE UNKNOWN)
     Route: 061
     Dates: start: 20120628, end: 20120703
  12. FLOMOX [Concomitant]
     Indication: CYSTITIS
     Dosage: 300 MG, QD
     Route: 048
     Dates: start: 20120716, end: 20120719
  13. BIO THREE [Concomitant]
     Indication: CYSTITIS
     Dosage: 3 DF, QD
     Route: 048
     Dates: start: 20120727, end: 20120806

REACTIONS (1)
  - Rash [Recovered/Resolved]
